FAERS Safety Report 10243022 (Version 1)
Quarter: 2014Q2

REPORT INFORMATION
  Report Type: Spontaneous
  Country: US (occurrence: US)
  Receive Date: 20140618
  Receipt Date: 20140618
  Transmission Date: 20141212
  Serious: No
  Sender: FDA-Public Use
  Company Number: US-ASTRAZENECA-2014SE40302

PATIENT
  Sex: Male

DRUGS (5)
  1. SEROQUEL [Suspect]
     Route: 048
  2. RESPERDAL [Concomitant]
  3. SAPHRIS [Concomitant]
  4. ZYPREXA [Concomitant]
  5. LATUDA [Concomitant]

REACTIONS (1)
  - Hepatic function abnormal [Unknown]
